FAERS Safety Report 5917978-7 (Version None)
Quarter: 2008Q4

REPORT INFORMATION
  Report Type: 
  Country: None (occurrence: None)
  Receive Date: 20081014
  Receipt Date: 20081006
  Transmission Date: 20090506
  Serious: Yes (Death, Hospitalization)
  Sender: FDA-Public Use
  Company Number: US-ELI_LILLY_AND_COMPANY-US200708006363

PATIENT
  Age: 75 Year
  Sex: Male

DRUGS (7)
  1. BYETTA [Suspect]
     Indication: TYPE 2 DIABETES MELLITUS
     Dosage: 5 UG, 2/D
     Route: 058
     Dates: start: 20051201, end: 20060101
  2. BYETTA [Suspect]
     Dosage: 10 MG, 2/D
     Route: 058
     Dates: start: 20060101, end: 20061001
  3. COREG [Concomitant]
  4. LIPITOR [Concomitant]
  5. COUMADIN [Concomitant]
  6. LASIX [Concomitant]
  7. GLIPIZIDE [Concomitant]

REACTIONS (3)
  - AORTIC VALVE REPLACEMENT [None]
  - CORONARY ARTERY BYPASS [None]
  - POST PROCEDURAL COMPLICATION [None]
